FAERS Safety Report 15237788 (Version 2)
Quarter: 2018Q3

REPORT INFORMATION
  Report Type: Spontaneous
  Country: US (occurrence: US)
  Receive Date: 20180803
  Receipt Date: 20180924
  Transmission Date: 20181010
  Serious: No
  Sender: FDA-Public Use
  Company Number: US-PFIZER INC-2018018008

PATIENT
  Age: 64 Year
  Sex: Male
  Weight: 107.9 kg

DRUGS (4)
  1. SOMAVERT [Suspect]
     Active Substance: PEGVISOMANT
     Dosage: 50 MG, DAILY (TAKES TWO INJECTIONS A DAY, ONE 20MG INJECTION AND ONE 30MG INJECTION)
     Dates: start: 201801
  2. ELIQUIS [Concomitant]
     Active Substance: APIXABAN
     Indication: ATRIAL FIBRILLATION
     Dosage: 5 MG, 2X/DAY
     Route: 048
     Dates: start: 201804
  3. SOMAVERT [Suspect]
     Active Substance: PEGVISOMANT
     Indication: PITUITARY TUMOUR
     Dosage: 40 MG, 1X/DAY
     Dates: end: 201712
  4. SOMAVERT [Suspect]
     Active Substance: PEGVISOMANT
     Dosage: 50 MG, DAILY (TAKES TWO INJECTIONS A DAY, ONE 20MG INJECTION AND ONE 30MG INJECTION)
     Dates: start: 201801

REACTIONS (2)
  - Overdose [Unknown]
  - Nuclear magnetic resonance imaging abnormal [Unknown]
